FAERS Safety Report 8460112-2 (Version None)
Quarter: 2012Q2

REPORT INFORMATION
  Report Type: 
  Country: None (occurrence: None)
  Receive Date: 20120323
  Receipt Date: 20111012
  Transmission Date: 20120825
  Serious: Yes (Hospitalization, Other)
  Sender: FDA-Public Use
  Company Number: 163-21880-11091306

PATIENT
  Age: 83 Year
  Sex: Female

DRUGS (12)
  1. REVLIMID [Suspect]
     Indication: MULTIPLE MYELOMA
     Dosage: 25 MG, DAILY X 21 DAYS, PO
     Route: 048
     Dates: start: 20110604
  2. ZOCOR [Concomitant]
  3. CELEXA [Concomitant]
  4. CALCIUM CARBONATE [Concomitant]
  5. ARICEPT [Concomitant]
  6. NIPREX (ALL OTHER THERAPEUTIC PRODUCTS) [Concomitant]
  7. VITAMIN D [Concomitant]
  8. REMERON [Concomitant]
  9. OSCAL (CALCIUM CARBONATE) [Concomitant]
  10. MIRTAZAPINE [Concomitant]
  11. PRAVACHOL [Concomitant]
  12. MULTIVITAMIN [Concomitant]

REACTIONS (2)
  - HIP FRACTURE [None]
  - FALL [None]
